FAERS Safety Report 4362661-5 (Version None)
Quarter: 2004Q2

REPORT INFORMATION
  Report Type: 
  Country: None (occurrence: None)
  Receive Date: 20040524
  Receipt Date: 20040511
  Transmission Date: 20050107
  Serious: Yes (Hospitalization)
  Sender: FDA-Public Use
  Company Number: 200411906FR

PATIENT
  Age: 56 Year
  Sex: Male

DRUGS (5)
  1. LASILIX FAIBLE [Suspect]
     Route: 048
  2. STILNOX [Suspect]
     Route: 048
  3. INEXIUM [Concomitant]
     Route: 048
  4. STABLON [Concomitant]
     Route: 048
  5. COZAAR [Concomitant]
     Route: 048

REACTIONS (1)
  - ENCEPHALOPATHY [None]
